FAERS Safety Report 4287461-6 (Version None)
Quarter: 2004Q1

REPORT INFORMATION
  Report Type: 
  Country: None (occurrence: None)
  Receive Date: 20040209
  Receipt Date: 20030702
  Transmission Date: 20041129
  Serious: No
  Sender: FDA-Public Use
  Company Number: US-GLAXOSMITHKLINE-A0414830A

PATIENT
  Age: 6 Year
  Sex: Female

DRUGS (2)
  1. PAXIL CR [Suspect]
     Indication: ATTENTION DEFICIT/HYPERACTIVITY DISORDER
     Dosage: 12.5MG PER DAY
     Route: 048
     Dates: start: 20021101, end: 20030301
  2. ADDERALL 10 [Concomitant]

REACTIONS (7)
  - ACTIVATED PARTIAL THROMBOPLASTIN TIME PROLONGED [None]
  - AGGRESSION [None]
  - AMNESIA [None]
  - CONTUSION [None]
  - CRYING [None]
  - PSYCHIATRIC SYMPTOM [None]
  - SHOPLIFTING [None]
